FAERS Safety Report 4385715-6 (Version None)
Quarter: 2004Q2

REPORT INFORMATION
  Report Type: 
  Country: None (occurrence: None)
  Receive Date: 20040623
  Receipt Date: 20040527
  Transmission Date: 20050107
  Serious: Yes (Hospitalization, Other)
  Sender: FDA-Public Use
  Company Number: 2004-BP-04267RA

PATIENT
  Age: 29 Year
  Sex: Female

DRUGS (3)
  1. VIRAMUNE [Suspect]
     Indication: HIV INFECTION
     Dosage: 200 MG  (SEE TEXT, 200MG/D, (STRENGTH: 200 MG/D))
     Route: 048
     Dates: start: 20040101
  2. ZIDOVUDINE [Suspect]
     Indication: HIV INFECTION
     Dosage: 300 MG (SEE TEXT, 300 MG/D (STRENGTH: 300 MG/D))
     Dates: start: 20040101
  3. LAMIVUDINE (LAMIVUDINE) [Suspect]
     Dosage: 150 MG (SEE TEXT, 150 MG/D (STRENGTH: 150 MG/D))
     Dates: start: 20040101

REACTIONS (2)
  - DRUG EXPOSURE DURING PREGNANCY [None]
  - STILLBIRTH [None]
